FAERS Safety Report 24807923 (Version 5)
Quarter: 2025Q3

REPORT INFORMATION
  Report Type: Spontaneous
  Country: EU (occurrence: EU)
  Receive Date: 20250106
  Receipt Date: 20250819
  Transmission Date: 20251021
  Serious: Yes (Other)
  Sender: TAKEDA
  Company Number: EU-CHEPLA-2024016029

PATIENT
  Age: 46 Year
  Sex: Female

DRUGS (4)
  1. ANAGRELIDE [Suspect]
     Active Substance: ANAGRELIDE
     Indication: Essential thrombocythaemia
  2. HYDREA [Suspect]
     Active Substance: HYDROXYUREA
     Indication: Essential thrombocythaemia
  3. PEGASYS [Suspect]
     Active Substance: PEGINTERFERON ALFA-2A
     Indication: Essential thrombocythaemia
  4. ELIQUIS [Suspect]
     Active Substance: APIXABAN
     Indication: Essential thrombocythaemia

REACTIONS (5)
  - Cerebrovascular accident [Unknown]
  - Dyspepsia [Unknown]
  - Deep vein thrombosis [Unknown]
  - Drug ineffective [Recovered/Resolved]
  - Drug intolerance [Recovered/Resolved]
